FAERS Safety Report 5354380-3 (Version None)
Quarter: 2007Q2

REPORT INFORMATION
  Report Type: 
  Country: None (occurrence: None)
  Receive Date: 20070612
  Receipt Date: 20070606
  Transmission Date: 20071010
  Serious: Yes (Other)
  Sender: FDA-Public Use
  Company Number: CHWYE180626MAR07

PATIENT
  Age: 31 Year
  Sex: Female
  Weight: 62 kg

DRUGS (2)
  1. EFFEXOR [Suspect]
     Indication: DEPRESSION
     Route: 048
     Dates: start: 20070310, end: 20070311
  2. EFFEXOR [Suspect]
     Route: 048
     Dates: start: 20070312, end: 20070501

REACTIONS (3)
  - DRUG EXPOSURE DURING PREGNANCY [None]
  - POSTPARTUM HAEMORRHAGE [None]
  - UTERINE ATONY [None]
